FAERS Safety Report 6239218-4 (Version None)
Quarter: 2009Q2

REPORT INFORMATION
  Report Type: 
  Country: None (occurrence: None)
  Receive Date: 20090622
  Receipt Date: 20090610
  Transmission Date: 20091009
  Serious: Yes (Hospitalization)
  Sender: FDA-Public Use
  Company Number: JP-PFIZER INC-2009227087

PATIENT
  Age: 56 Year

DRUGS (2)
  1. AZULFIDINE [Suspect]
     Dosage: 1000 MG, 2X/DAY
     Dates: start: 20090508, end: 20090519
  2. MUCOSTA [Concomitant]

REACTIONS (3)
  - DRUG ERUPTION [None]
  - ERYTHEMA [None]
  - PYREXIA [None]
